FAERS Safety Report 6457502-6 (Version None)
Quarter: 2009Q4

REPORT INFORMATION
  Report Type: 
  Country: None (occurrence: None)
  Receive Date: 20091024
  Receipt Date: 20091109
  Transmission Date: 20100525
  Serious: Yes (Death, Hospitalization)
  Sender: FDA-Public Use
  Company Number: 2009AC000240

PATIENT
  Age: 75 Year
  Sex: Female

DRUGS (109)
  1. DIGOXIN [Suspect]
     Indication: ARRHYTHMIA
     Dosage: 0.125 MG;QD;PO
     Route: 048
     Dates: start: 20080123, end: 20080125
  2. DIGOXIN [Suspect]
     Dosage: 0.25 MG;QD;PO
     Route: 048
     Dates: start: 20080125
  3. ASPIRIN [Concomitant]
  4. PLAVIX [Concomitant]
  5. COLACE [Concomitant]
  6. INSORA [Concomitant]
  7. LEXAPRO [Concomitant]
  8. FLONASE [Concomitant]
  9. NOVOLOG SLIDING SCALE AC AND HS [Concomitant]
  10. ATROVENT [Concomitant]
  11. XOPENEX [Concomitant]
  12. CLARITIN [Concomitant]
  13. TOPROL-XL [Concomitant]
  14. PROLONIX [Concomitant]
  15. PREDNISONE [Concomitant]
  16. ALDACE [Concomitant]
  17. FOLIC ACID [Concomitant]
  18. XANAX [Concomitant]
  19. METOPROLOL [Concomitant]
  20. CALCIUM [Concomitant]
  21. ATENOLOL [Concomitant]
  22. PHENERGAN HCL [Concomitant]
  23. HYDROCODONE-APA [Concomitant]
  24. LYRICA [Concomitant]
  25. AMBIEN [Concomitant]
  26. SINGULAIR [Concomitant]
  27. ACTONEL [Concomitant]
  28. RHINOCORT [Concomitant]
  29. GLIPIZIDE [Concomitant]
  30. AEROBID [Concomitant]
  31. PREMARIN [Concomitant]
  32. REQUIP [Concomitant]
  33. SPIRIVA [Concomitant]
  34. ZYRTEC [Concomitant]
  35. CRESTOR [Concomitant]
  36. METOPROLOL SUCCINATE EXTENDED RELEASE [Concomitant]
  37. PAROXETINE HCL [Concomitant]
  38. PREVACID [Concomitant]
  39. MELOXICAM [Concomitant]
  40. BONIVA [Concomitant]
  41. ZOLPIDEM TARTRATE [Concomitant]
  42. ALPRAZOLAM [Concomitant]
  43. CEFDINIR [Concomitant]
  44. CHANTIX [Concomitant]
  45. PROMETHAZINE [Concomitant]
  46. RANITIDINE [Concomitant]
  47. METOCLOPRAMIDE [Concomitant]
  48. ADVAIR DISKUS 100/50 [Concomitant]
  49. LISINOPRIL [Concomitant]
  50. AZITHROMYCIN [Concomitant]
  51. GUAIFEN-PHENYL [Concomitant]
  52. LORATADINE [Concomitant]
  53. PANTOPRAZOLE [Concomitant]
  54. FLUTICASONE [Concomitant]
  55. DOCUSATE SODIUM [Concomitant]
  56. NOVOLOG [Concomitant]
  57. ALTACE [Concomitant]
  58. THEREMS-M [Concomitant]
  59. FORTICAL [Concomitant]
  60. TRAMADOL HCL [Concomitant]
  61. CARAFATE [Concomitant]
  62. GLYCOPYRROLATE [Concomitant]
  63. MEGESTROL ACETATE [Concomitant]
  64. NEXIUM [Concomitant]
  65. FUROSEMIDE [Concomitant]
  66. IPRATROPIUM ER [Concomitant]
  67. HUMALOG [Concomitant]
  68. XOPENEX [Concomitant]
  69. SINGULAIR [Concomitant]
  70. RHINOCORT [Concomitant]
  71. PLAVIX [Concomitant]
  72. PREDNISONE [Concomitant]
  73. HYDROCODONE [Concomitant]
  74. AZITHROMYCIN [Concomitant]
  75. ALPRAZOLAM [Concomitant]
  76. NEXIUM [Concomitant]
  77. ATENOLOL [Concomitant]
  78. ACETYLCYSTEINE [Concomitant]
  79. XOPENEX [Concomitant]
  80. ADVAIR DISKUS 100/50 [Concomitant]
  81. PREMARIN [Concomitant]
  82. ACTONEL [Concomitant]
  83. DIOVAN [Concomitant]
  84. PREDNISONE [Concomitant]
  85. PREVACID [Concomitant]
  86. FISH OIL [Concomitant]
  87. DOXYCYCL [Concomitant]
  88. SPIRIVA [Concomitant]
  89. ROZEREM [Concomitant]
  90. LYRICA [Concomitant]
  91. REQUIP [Concomitant]
  92. LEXAPRO [Concomitant]
  93. HYDROCODONE [Concomitant]
  94. CRESTOR [Concomitant]
  95. ZYRTEC [Concomitant]
  96. AEROBID [Concomitant]
  97. PLAVIX [Concomitant]
  98. GLIPIZIDE [Concomitant]
  99. RHINOCORT [Concomitant]
  100. ATENOLOL [Concomitant]
  101. LORTAB [Concomitant]
  102. SINGULAIR [Concomitant]
  103. ZOFRAN [Concomitant]
  104. MORPHINE [Concomitant]
  105. TYLENOL (CAPLET) [Concomitant]
  106. COLACE [Concomitant]
  107. CLARITIN [Concomitant]
  108. HUMALOG [Concomitant]
  109. VICODIN [Concomitant]

REACTIONS (36)
  - ABDOMINAL PAIN [None]
  - ABDOMINAL TENDERNESS [None]
  - AGGRESSION [None]
  - ANXIETY [None]
  - ARTHRITIS [None]
  - BLOOD PRESSURE SYSTOLIC INCREASED [None]
  - CARDIAC FAILURE CONGESTIVE [None]
  - CARDIO-RESPIRATORY ARREST [None]
  - CARDIOACTIVE DRUG LEVEL INCREASED [None]
  - CHRONIC OBSTRUCTIVE PULMONARY DISEASE [None]
  - COLITIS ISCHAEMIC [None]
  - CONSTIPATION [None]
  - DEHYDRATION [None]
  - DIARRHOEA [None]
  - EMPHYSEMA [None]
  - GASTRIC ULCER [None]
  - GASTRITIS [None]
  - HAEMATOCRIT DECREASED [None]
  - HAEMOGLOBIN DECREASED [None]
  - HYPERHIDROSIS [None]
  - HYPOTENSION [None]
  - LOWER GASTROINTESTINAL HAEMORRHAGE [None]
  - NAUSEA [None]
  - OSTEOPOROSIS [None]
  - PAIN [None]
  - PERIPHERAL VASCULAR DISORDER [None]
  - POLYP [None]
  - RED CELL DISTRIBUTION WIDTH INCREASED [None]
  - RENAL FAILURE ACUTE [None]
  - RESPIRATORY FAILURE [None]
  - SINUS TACHYCARDIA [None]
  - URINARY TRACT INFECTION [None]
  - UROSEPSIS [None]
  - VENTRICULAR FIBRILLATION [None]
  - VOMITING [None]
  - WEIGHT DECREASED [None]
